FAERS Safety Report 7340041-8 (Version None)
Quarter: 2011Q1

REPORT INFORMATION
  Report Type: 
  Country: None (occurrence: None)
  Receive Date: 20110309
  Receipt Date: 20110224
  Transmission Date: 20110831
  Serious: Yes (Life-Threatening, Hospitalization)
  Sender: FDA-Public Use
  Company Number: US-CELGENEUS-163-21880-10123298

PATIENT
  Sex: Male
  Weight: 72.5 kg

DRUGS (12)
  1. GABAPENTIN [Concomitant]
     Dosage: 200 MILLIGRAM
     Route: 048
  2. POLYETHYLENE GLYCOL [Concomitant]
     Indication: CONSTIPATION
     Dosage: 17 GRAM
     Route: 048
  3. DOCUSATE [Concomitant]
     Indication: CONSTIPATION
     Dosage: 1 TABLET
     Route: 048
  4. ACYCLOVIR [Concomitant]
     Indication: ANTIVIRAL PROPHYLAXIS
     Dosage: 400 MILLIGRAM
     Route: 048
  5. ASPIRIN [Concomitant]
     Dosage: 325 MILLIGRAM
     Route: 048
  6. SENNA [Concomitant]
     Indication: CONSTIPATION
     Dosage: 1 TABLET
     Route: 048
  7. TAMSULOSIN HCL [Concomitant]
     Indication: BLADDER DISORDER
     Dosage: .4 MILLIGRAM
     Route: 048
  8. BACITRACIN [Concomitant]
     Route: 061
  9. REVLIMID [Suspect]
     Indication: MULTIPLE MYELOMA
     Dosage: 25 MILLIGRAM
     Route: 048
     Dates: start: 20101001
  10. CIPROFLOXACIN [Concomitant]
     Indication: INFECTION
     Dosage: 500 MILLIGRAM
     Route: 048
  11. DEXAMETHASONE [Concomitant]
     Dosage: 40 MILLIGRAM
     Route: 048
  12. DUTASTERIDE [Concomitant]
     Indication: BLADDER DISORDER
     Dosage: .5 MILLIGRAM
     Route: 048

REACTIONS (3)
  - PAIN [None]
  - DEEP VEIN THROMBOSIS [None]
  - PULMONARY EMBOLISM [None]
